FAERS Safety Report 16243570 (Version 24)
Quarter: 2024Q1

REPORT INFORMATION
  Report Type: Spontaneous
  Country: US (occurrence: US)
  Receive Date: 20190426
  Receipt Date: 20240301
  Transmission Date: 20240410
  Serious: Yes (Hospitalization, Other)
  Sender: FDA-Public Use
  Company Number: US-PFIZER INC-2019168642

PATIENT
  Age: 80 Year
  Sex: Female
  Weight: 73 kg

DRUGS (31)
  1. PREMARIN [Suspect]
     Active Substance: ESTROGENS, CONJUGATED
     Indication: Menopause
     Dosage: 0.03 MG, DAILY
     Route: 048
     Dates: start: 1956
  2. PREMARIN [Suspect]
     Active Substance: ESTROGENS, CONJUGATED
     Indication: Cervix neoplasm
     Dosage: 1.75 MG, ONCE DAILY
     Route: 048
  3. PREMARIN [Suspect]
     Active Substance: ESTROGENS, CONJUGATED
     Indication: Hot flush
     Dosage: UNK
     Dates: end: 201806
  4. PREMARIN [Suspect]
     Active Substance: ESTROGENS, CONJUGATED
     Indication: Hormone replacement therapy
     Dosage: 0.3 MG, DAILY
     Route: 048
  5. PREMARIN [Suspect]
     Active Substance: ESTROGENS, CONJUGATED
     Indication: Menopausal symptoms
     Dosage: 0.03 MG, DAILY
     Route: 048
     Dates: start: 202309
  6. VITAMIN C WITH ROSE HIPS [Concomitant]
     Dosage: UNK
     Dates: start: 1990
  7. COLLAGEN [Concomitant]
     Active Substance: COLLAGEN
     Dosage: 1000 ML, DAILY
  8. COLLAGEN [Concomitant]
     Active Substance: COLLAGEN
     Dosage: 500 MG, UNK
  9. COLLAGEN [Concomitant]
     Active Substance: COLLAGEN
     Dosage: 1000 MG, UNK
  10. COLLAGEN [Concomitant]
     Active Substance: COLLAGEN
     Dosage: UNK
     Dates: start: 1998
  11. CLONIDINE [Concomitant]
     Active Substance: CLONIDINE
     Indication: Blood disorder
     Dosage: UNK
     Dates: start: 1980
  12. CLONIDINE [Concomitant]
     Active Substance: CLONIDINE
     Dosage: 0.1 MG, DAILY
     Dates: start: 1998
  13. LOVASTATIN [Concomitant]
     Active Substance: LOVASTATIN
     Indication: Blood disorder
     Dosage: UNK
     Dates: start: 1990
  14. LOVASTATIN [Concomitant]
     Active Substance: LOVASTATIN
     Indication: Anticoagulant therapy
     Dosage: 40 MG, DAILY
     Dates: start: 1995
  15. LOVASTATIN [Concomitant]
     Active Substance: LOVASTATIN
     Indication: Cardiac disorder
  16. HYDROCHLOROTHIAZIDE [Concomitant]
     Active Substance: HYDROCHLOROTHIAZIDE
     Indication: Cardiac disorder
     Dosage: 10 MG, DAILY
     Dates: start: 1995
  17. HYDROCHLOROTHIAZIDE [Concomitant]
     Active Substance: HYDROCHLOROTHIAZIDE
     Dosage: UNK
  18. METOPROLOL SUCCINATE [Concomitant]
     Active Substance: METOPROLOL SUCCINATE
     Indication: Cardiac disorder
     Dosage: 100 MG, DAILY
     Dates: start: 1995
  19. METOPROLOL SUCCINATE [Concomitant]
     Active Substance: METOPROLOL SUCCINATE
     Dosage: UNK
  20. LISINOPRIL [Concomitant]
     Active Substance: LISINOPRIL
     Indication: Cardiac disorder
     Dosage: 40 MG, DAILY
     Dates: start: 1995
  21. LISINOPRIL [Concomitant]
     Active Substance: LISINOPRIL
     Dosage: UNK
  22. HYDROXYCHLOROQUINE [Concomitant]
     Active Substance: HYDROXYCHLOROQUINE
     Indication: Systemic lupus erythematosus
     Dosage: 200 MG, DAILY
  23. HYDROXYCHLOROQUINE [Concomitant]
     Active Substance: HYDROXYCHLOROQUINE
     Dosage: UNK
  24. VALACYCLOVIR HYDROCHLORIDE [Concomitant]
     Active Substance: VALACYCLOVIR HYDROCHLORIDE
     Dosage: 500 MG, DAILY
  25. VALACYCLOVIR HYDROCHLORIDE [Concomitant]
     Active Substance: VALACYCLOVIR HYDROCHLORIDE
     Dosage: UNK
  26. GLUCOSAMINE [Concomitant]
     Active Substance: GLUCOSAMINE
     Dosage: 100 MG, DAILY
     Dates: start: 1995
  27. GLUCOSAMINE [Concomitant]
     Active Substance: GLUCOSAMINE
     Dosage: UNK
  28. CHONDROITIN SULFATE (BOVINE)\GLUCOSAMINE HYDROCHLORIDE [Concomitant]
     Active Substance: CHONDROITIN SULFATE (BOVINE)\GLUCOSAMINE HYDROCHLORIDE
     Dosage: UNK
  29. VITAMIN A ACETATE [Concomitant]
     Active Substance: VITAMIN A ACETATE
     Dosage: UNK
  30. VITAMIN B [Concomitant]
     Active Substance: VITAMIN B
     Dosage: UNK
  31. CALCIUM [Concomitant]
     Active Substance: CALCIUM
     Dosage: UNK

REACTIONS (24)
  - Ovarian cyst [Recovered/Resolved]
  - Sciatica [Recovered/Resolved]
  - Autoimmune disorder [Unknown]
  - Immunodeficiency [Unknown]
  - Balance disorder [Recovered/Resolved]
  - Balance disorder [Unknown]
  - Mobility decreased [Unknown]
  - Fall [Unknown]
  - Hysterectomy [Unknown]
  - Shoulder arthroplasty [Unknown]
  - Pain [Recovered/Resolved]
  - Hair growth abnormal [Recovered/Resolved]
  - Movement disorder [Unknown]
  - General physical health deterioration [Unknown]
  - Breast disorder [Unknown]
  - Gait disturbance [Unknown]
  - Disturbance in attention [Unknown]
  - Mental disorder [Unknown]
  - Memory impairment [Unknown]
  - Limb discomfort [Unknown]
  - Abdominal pain [Unknown]
  - Abdominal pain upper [Unknown]
  - Therapeutic response unexpected [Recovered/Resolved]
  - Product prescribing error [Unknown]

NARRATIVE: CASE EVENT DATE: 20160101
